FAERS Safety Report 16286722 (Version 1)
Quarter: 2019Q2

REPORT INFORMATION
  Report Type: Spontaneous
  Country: FR (occurrence: FR)
  Receive Date: 20190508
  Receipt Date: 20190508
  Transmission Date: 20190711
  Serious: Yes (Hospitalization)
  Sender: FDA-Public Use
  Company Number: FR-ASTRAZENECA-2019SE66804

PATIENT
  Age: 65 Year
  Sex: Male
  Weight: 85 kg

DRUGS (8)
  1. VISIPAQUE [Suspect]
     Active Substance: IODIXANOL
     Indication: ANGIOCARDIOGRAM
     Dosage: 140.0ML ONCE/SINGLE ADMINISTRATION
     Route: 041
     Dates: start: 20190402, end: 20190402
  2. XYLOCAINE [Suspect]
     Active Substance: LIDOCAINE HYDROCHLORIDE
     Indication: ANGIOCARDIOGRAM
     Dosage: 2.0ML ONCE/SINGLE ADMINISTRATION
     Route: 058
     Dates: start: 20190402, end: 20190402
  3. ASPEGIC [AMINOACETIC ACID\ACETYLSALICYLATE LYSINE] [Suspect]
     Active Substance: ASPIRIN DL-LYSINE\GLYCINE
     Indication: ANGIOCARDIOGRAM
     Dosage: 250.0MG ONCE/SINGLE ADMINISTRATION
     Route: 041
     Dates: start: 20190402, end: 20190402
  4. DEXERYL (CHLORPHENAMINE MALEATE\DEXTROMETHORPHAN HYDROBROMIDE\GUAIFENESIN\PHENYLEPHRINE HYDROCHLORIDE) [Concomitant]
     Active Substance: CHLORPHENIRAMINE MALEATE\DEXTROMETHORPHAN HYDROBROMIDE\GUAIFENESIN\PHENYLEPHRINE HYDROCHLORIDE
     Route: 065
  5. BRILIQUE [Suspect]
     Active Substance: TICAGRELOR
     Indication: ANGIOCARDIOGRAM
     Dosage: 2.0DF ONCE/SINGLE ADMINISTRATION
     Route: 048
     Dates: start: 20190402, end: 20190402
  6. HEPARIN [Suspect]
     Active Substance: HEPARIN SODIUM
     Indication: ANGIOCARDIOGRAM
     Dosage: 6000.0IU ONCE/SINGLE ADMINISTRATION
     Route: 041
     Dates: start: 20190402, end: 20190402
  7. ISOPTINE [Suspect]
     Active Substance: VERAPAMIL HYDROCHLORIDE
     Indication: ANGIOCARDIOGRAM
     Dosage: 2.5MG ONCE/SINGLE ADMINISTRATION
     Route: 041
     Dates: start: 20190402, end: 20190402
  8. NERISONE [Concomitant]
     Active Substance: DIFLUCORTOLONE VALERATE

REACTIONS (1)
  - Erythema [Recovered/Resolved]

NARRATIVE: CASE EVENT DATE: 20190402
